FAERS Safety Report 19278214 (Version 2)
Quarter: 2021Q2

REPORT INFORMATION
  Report Type: Report from Study
  Country: IR (occurrence: IR)
  Receive Date: 20210520
  Receipt Date: 20210601
  Transmission Date: 20210717
  Serious: Yes (Hospitalization, Other)
  Sender: FDA-Public Use
  Company Number: IR-REGENERON PHARMACEUTICALS, INC.-2021-50994

PATIENT

DRUGS (2)
  1. EYLEA [Suspect]
     Active Substance: AFLIBERCEPT
     Dosage: IN BOTH EYES
     Dates: start: 20210505, end: 20210505
  2. EYLEA [Suspect]
     Active Substance: AFLIBERCEPT
     Indication: CHOROIDAL NEOVASCULARISATION
     Dosage: 2 MG, BOTH EYES, EVERY 2?3 MONTHS RECEIVED ABOUT 20 DOSES OF EYLEA
     Route: 031
     Dates: start: 20191219

REACTIONS (3)
  - Endophthalmitis [Recovering/Resolving]
  - Multiple use of single-use product [Unknown]
  - Blindness unilateral [Not Recovered/Not Resolved]

NARRATIVE: CASE EVENT DATE: 20210505
